FAERS Safety Report 12589308 (Version 1)
Quarter: 2016Q3

REPORT INFORMATION
  Report Type: Spontaneous
  Country: US (occurrence: US)
  Receive Date: 20160725
  Receipt Date: 20160725
  Transmission Date: 20161109
  Serious: No
  Sender: FDA-Public Use
  Company Number: US-JNJFOC-20160623018

PATIENT
  Age: 23 Year
  Sex: Male
  Weight: 68.04 kg

DRUGS (2)
  1. VISINE A [Suspect]
     Active Substance: NAPHAZOLINE HYDROCHLORIDE\PHENIRAMINE MALEATE
     Indication: OCULAR HYPERAEMIA
     Dosage: 2 DROPS IN ONE EYE, ABOUT EVERY 3 HOURS UP TO 4 TIMES
     Route: 047
     Dates: start: 20160622
  2. VISINE A [Suspect]
     Active Substance: NAPHAZOLINE HYDROCHLORIDE\PHENIRAMINE MALEATE
     Indication: EYE PRURITUS
     Dosage: 2 DROPS IN ONE EYE, ABOUT EVERY 3 HOURS UP TO 4 TIMES
     Route: 047
     Dates: start: 20160622

REACTIONS (2)
  - Mydriasis [Not Recovered/Not Resolved]
  - Wrong technique in product usage process [Not Recovered/Not Resolved]

NARRATIVE: CASE EVENT DATE: 20160623
